FAERS Safety Report 9299007 (Version 1)
Quarter: 2013Q2

REPORT INFORMATION
  Report Type: Spontaneous
  Country: GB (occurrence: GB)
  Receive Date: 20130520
  Receipt Date: 20130520
  Transmission Date: 20140414
  Serious: Yes (Life-Threatening, Hospitalization)
  Sender: FDA-Public Use
  Company Number: GB-UCBSA-085900

PATIENT
  Age: 11 Year
  Sex: Male
  Weight: 35 kg

DRUGS (7)
  1. LEVETIRACETAM [Suspect]
     Indication: EPILEPSY
     Route: 048
     Dates: start: 20130228, end: 20130419
  2. AZITHROMYCIN [Concomitant]
     Indication: ANTIBIOTIC PROPHYLAXIS
     Dosage: UNKNOWN DOSE
  3. DOMPERIDONE [Concomitant]
     Dosage: UNKNOWN DOSE
  4. ETHOSUXIMIDE [Concomitant]
     Dosage: UNKNOWN DOSE
     Dates: start: 201303
  5. MOVICOL [Concomitant]
     Dosage: UNKNOWN DOSE
  6. RANITIDINE [Concomitant]
     Dosage: UNKNOWN DOSE
  7. SODIUM VALPROATE [Concomitant]
     Dosage: UNKNOWN DOSE
     Dates: start: 2007

REACTIONS (4)
  - Gingival bleeding [Unknown]
  - Procedural haemorrhage [Unknown]
  - Thrombocytopenia [Recovered/Resolved]
  - Rash [Unknown]
